FAERS Safety Report 17363038 (Version 1)
Quarter: 2020Q1

REPORT INFORMATION
  Report Type: Report from Study
  Country: IL (occurrence: IL)
  Receive Date: 20200203
  Receipt Date: 20200203
  Transmission Date: 20200409
  Serious: Yes (Other)
  Sender: FDA-Public Use
  Company Number: IL-JNJFOC-20191043387

PATIENT
  Age: 51 Year
  Sex: Male

DRUGS (2)
  1. OPTALGIN [Concomitant]
     Active Substance: METAMIZOLE
  2. STELARA [Suspect]
     Active Substance: USTEKINUMAB
     Indication: CROHN^S DISEASE
     Route: 058
     Dates: start: 20190707

REACTIONS (7)
  - Viral infection [Recovered/Resolved]
  - Loss of personal independence in daily activities [Recovered/Resolved]
  - Discomfort [Recovered/Resolved]
  - Crohn^s disease [Recovering/Resolving]
  - Inappropriate schedule of product administration [Unknown]
  - Disturbance in attention [Recovered/Resolved]
  - Drug ineffective [Not Recovered/Not Resolved]

NARRATIVE: CASE EVENT DATE: 20190707
